FAERS Safety Report 7314273-9 (Version None)
Quarter: 2011Q1

REPORT INFORMATION
  Report Type: 
  Country: None (occurrence: None)
  Receive Date: 20110225
  Receipt Date: 20100717
  Transmission Date: 20110831
  Serious: No
  Sender: FDA-Public Use
  Company Number: US-MYLANLABS-2010S1011744

PATIENT
  Age: 20 Year
  Sex: Female

DRUGS (6)
  1. ACETAMINOPHEN [Concomitant]
     Route: 048
  2. PHENAZOPYRIDINE HCL TAB [Concomitant]
     Route: 048
     Dates: start: 20100601, end: 20100601
  3. AMNESTEEM [Suspect]
     Indication: ACNE
     Route: 048
     Dates: start: 20100517, end: 20100701
  4. DAYQUIL [Concomitant]
     Indication: NASOPHARYNGITIS
     Route: 048
     Dates: start: 20100601, end: 20100601
  5. BIOTIN [Concomitant]
     Route: 048
     Dates: end: 20100101
  6. ORAL CONTRACEPTIVE NOS [Concomitant]
     Route: 048

REACTIONS (1)
  - HAEMATOCHEZIA [None]
